FAERS Safety Report 10968044 (Version 1)
Quarter: 2015Q1

REPORT INFORMATION
  Report Type: Report from Study
  Country: US (occurrence: US)
  Receive Date: 20150330
  Receipt Date: 20150330
  Transmission Date: 20150721
  Serious: Yes (Hospitalization)
  Sender: FDA-Public Use
  Company Number: US-SA-2015SA039178

PATIENT
  Age: 50 Year
  Sex: Female

DRUGS (1)
  1. AUBAGIO [Suspect]
     Active Substance: TERIFLUNOMIDE
     Indication: MULTIPLE SCLEROSIS
     Route: 048
     Dates: start: 20141003

REACTIONS (6)
  - Hypertonia [Unknown]
  - Muscular weakness [Unknown]
  - Hypokinesia [Unknown]
  - Fall [Unknown]
  - Feeling abnormal [Unknown]
  - Urinary retention [Unknown]

NARRATIVE: CASE EVENT DATE: 201502
